FAERS Safety Report 24211280 (Version 1)
Quarter: 2024Q3

REPORT INFORMATION
  Report Type: Spontaneous
  Country: US (occurrence: None)
  Receive Date: 20240814
  Receipt Date: 20240814
  Transmission Date: 20241017
  Serious: No
  Sender: Public
  Company Number: None

PATIENT
  Age: 54 Year
  Sex: Female

DRUGS (2)
  1. OTEZLA [Suspect]
     Active Substance: APREMILAST
     Indication: Psoriatic arthropathy
  2. VERAPAMIL HCI [Concomitant]
     Dosage: FREQUENCY : TWICE A DAY;?
     Route: 048
     Dates: start: 202201

REACTIONS (3)
  - Cardiac failure [None]
  - Blood potassium abnormal [None]
  - Therapy interrupted [None]
